FAERS Safety Report 14587886 (Version 2)
Quarter: 2018Q2

REPORT INFORMATION
  Report Type: Spontaneous
  Country: BR (occurrence: BR)
  Receive Date: 20180301
  Receipt Date: 20180411
  Transmission Date: 20180711
  Serious: Yes (Death)
  Sender: FDA-Public Use
  Company Number: BR-NAPPMUNDI-GBR-2018-0053594

PATIENT
  Age: 70 Year
  Sex: Male

DRUGS (1)
  1. OXYCONTIN [Suspect]
     Active Substance: OXYCODONE HYDROCHLORIDE
     Indication: PAIN
     Dosage: UNK (20MG STRENGTH)
     Route: 048

REACTIONS (6)
  - Drug ineffective [Unknown]
  - Neoplasm [Fatal]
  - Weight decreased [Unknown]
  - Dysphagia [Unknown]
  - Asthenia [Unknown]
  - Decreased appetite [Unknown]
